FAERS Safety Report 23110299 (Version 1)
Quarter: 2023Q4

REPORT INFORMATION
  Report Type: Spontaneous
  Country: US (occurrence: None)
  Receive Date: 20231024
  Receipt Date: 20231024
  Transmission Date: 20240110
  Serious: Yes (Hospitalization)
  Sender: FDA-Public Use
  Company Number: None

PATIENT
  Age: 64 Year
  Sex: Female

DRUGS (1)
  1. PREGABALIN [Suspect]
     Active Substance: PREGABALIN
     Dosage: FREQUENCY : TWICE A DAY;?
     Route: 048
     Dates: end: 20230317

REACTIONS (2)
  - Face oedema [None]
  - Dyspnoea [None]

NARRATIVE: CASE EVENT DATE: 20220317
